FAERS Safety Report 6158657-3 (Version None)
Quarter: 2009Q2

REPORT INFORMATION
  Report Type: 
  Country: None (occurrence: None)
  Receive Date: 20090415
  Receipt Date: 20090407
  Transmission Date: 20091009
  Serious: Yes (Hospitalization, Other)
  Sender: FDA-Public Use
  Company Number: 2009SP003768

PATIENT
  Age: 57 Year
  Sex: Male

DRUGS (2)
  1. PEG-INTRON [Suspect]
     Indication: HEPATITIS C
     Dosage: SC
     Route: 058
     Dates: start: 20081108
  2. RIBAVIRIN [Suspect]
     Indication: HEPATITIS C
     Dosage: PO
     Route: 048
     Dates: start: 20081108

REACTIONS (7)
  - ABSCESS [None]
  - CHEST PAIN [None]
  - HAEMOPTYSIS [None]
  - PNEUMONIA [None]
  - PULMONARY OEDEMA [None]
  - TUBERCULIN TEST POSITIVE [None]
  - WEIGHT DECREASED [None]
